FAERS Safety Report 12434483 (Version 1)
Quarter: 2016Q2

REPORT INFORMATION
  Report Type: Spontaneous
  Country: DE (occurrence: DE)
  Receive Date: 20160603
  Receipt Date: 20160603
  Transmission Date: 20160815
  Serious: Yes (Other)
  Sender: FDA-Public Use
  Company Number: DE-TEVA-662576GER

PATIENT
  Age: 0 Day
  Sex: Male

DRUGS (6)
  1. FEMIBION [Concomitant]
     Active Substance: VITAMINS
     Indication: PROPHYLAXIS OF NEURAL TUBE DEFECT
     Dosage: 0.8 MG/D, DOSAGE BETWEEN 0.8 MG AND 5 MG/D
     Route: 064
     Dates: start: 20150309, end: 20151214
  2. PREDNISOLONE. [Suspect]
     Active Substance: PREDNISOLONE
     Indication: RHEUMATIC DISORDER
     Dosage: GW 0 UNTIL 14: 7.5 MG/D, GW 14 UNTIL DELIVERY: 5 MG/D
     Route: 064
     Dates: start: 20150309, end: 20151214
  3. IBUPROFEN. [Concomitant]
     Active Substance: IBUPROFEN
     Indication: RHEUMATIC DISORDER
     Dosage: 400 MG/D, 2 OR THREE TIMES DURING PREGNANCY
     Route: 064
  4. GRIPP-HEEL [Concomitant]
     Active Substance: HOMEOPATHICS
     Indication: PRODUCT USED FOR UNKNOWN INDICATION
     Route: 064
  5. COLECALCIFEROL [Concomitant]
     Active Substance: CHOLECALCIFEROL
     Indication: VITAMIN D DEFICIENCY
     Dosage: 1000 IU (INTERNATIONAL UNIT) DAILY;
     Route: 064
     Dates: start: 20150309, end: 20151214
  6. ANAKINRA [Suspect]
     Active Substance: ANAKINRA
     Indication: RHEUMATIC DISORDER
     Dosage: 100 MILLIGRAM DAILY;
     Route: 064
     Dates: start: 20150309, end: 20151214

REACTIONS (2)
  - Small for dates baby [Recovered/Resolved]
  - Foetal exposure during pregnancy [Unknown]

NARRATIVE: CASE EVENT DATE: 20151214
